FAERS Safety Report 8379020-0 (Version None)
Quarter: 2012Q2

REPORT INFORMATION
  Report Type: 
  Country: None (occurrence: None)
  Receive Date: 20120522
  Receipt Date: 20120522
  Transmission Date: 20120825
  Serious: Yes (Hospitalization)
  Sender: FDA-Public Use
  Company Number: None

PATIENT
  Age: 82 Year
  Sex: Female
  Weight: 69.4003 kg

DRUGS (1)
  1. PRADAXA [Suspect]
     Indication: ATRIAL FIBRILLATION
     Dosage: 150MGM X2/DAY PO
     Route: 048
     Dates: start: 20120229, end: 20120318

REACTIONS (5)
  - NAUSEA [None]
  - VOMITING [None]
  - HEADACHE [None]
  - CHEST DISCOMFORT [None]
  - VIRAL INFECTION [None]
